FAERS Safety Report 6100611-1 (Version None)
Quarter: 2009Q1

REPORT INFORMATION
  Report Type: 
  Country: None (occurrence: None)
  Receive Date: 20090223
  Receipt Date: 20090216
  Transmission Date: 20090719
  Serious: Yes (Hospitalization)
  Sender: FDA-Public Use
  Company Number: CHPA2009US04494

PATIENT
  Age: 49 Year
  Sex: Female

DRUGS (2)
  1. TAVIST [Suspect]
     Indication: NASOPHARYNGITIS
     Dosage: 1 MG, QD, ORAL
     Route: 048
     Dates: start: 20081201, end: 20081201
  2. ALKA-SELTZER PLUS NIGHT-TIME (ACETYLSALICYLIC ACID, DIPHENHYDRAMINE CI [Suspect]
     Dosage: 1-2 TIMES A DAY, ORAL
     Route: 048
     Dates: start: 20081201, end: 20081201

REACTIONS (2)
  - CEREBROVASCULAR ACCIDENT [None]
  - HYPERTENSION [None]
